FAERS Safety Report 13421146 (Version 2)
Quarter: 2017Q4

REPORT INFORMATION
  Report Type: Report from Study
  Country: US (occurrence: US)
  Receive Date: 20170410
  Receipt Date: 20171027
  Transmission Date: 20180320
  Serious: Yes (Hospitalization, Other)
  Sender: FDA-Public Use
  Company Number: US-ALEXION PHARMACEUTICALS INC.-A201703347

PATIENT
  Age: 20 Year
  Sex: Female
  Weight: 52.2 kg

DRUGS (4)
  1. PLASMA-PLEX [Concomitant]
     Active Substance: PLASMA PROTEIN FRACTION (HUMAN)
     Indication: PRODUCT USED FOR UNKNOWN INDICATION
     Dosage: UNK
     Route: 065
     Dates: start: 20141202
  2. AUGMENTIN [Concomitant]
     Active Substance: AMOXICILLIN\CLAVULANATE POTASSIUM
     Indication: PRODUCT USED FOR UNKNOWN INDICATION
     Route: 065
  3. SOLIRIS [Suspect]
     Active Substance: ECULIZUMAB
     Indication: HAEMOLYTIC URAEMIC SYNDROME
     Dosage: 900 MG, QW
     Route: 042
     Dates: start: 20141126, end: 20141219
  4. SOLIRIS [Suspect]
     Active Substance: ECULIZUMAB
     Dosage: 1200 MG, Q2W
     Route: 042
     Dates: start: 20141226, end: 20170929

REACTIONS (20)
  - Platelet count decreased [Unknown]
  - Hypertension [Unknown]
  - Glomerulosclerosis [Unknown]
  - Interstitial lung disease [Unknown]
  - Blood creatinine increased [Unknown]
  - Nausea [Unknown]
  - Renal tubular atrophy [Unknown]
  - Inappropriate schedule of drug administration [Unknown]
  - Vomiting [Unknown]
  - Generalised tonic-clonic seizure [Unknown]
  - Red blood cell count decreased [Unknown]
  - Encephalopathy [Unknown]
  - Acute kidney injury [Recovering/Resolving]
  - Mental status changes [Unknown]
  - Renal tubular injury [Unknown]
  - Thrombotic microangiopathy [Unknown]
  - Confusional state [Unknown]
  - Glomerular filtration rate decreased [Unknown]
  - Visual impairment [Unknown]
  - Mean cell haemoglobin increased [Unknown]

NARRATIVE: CASE EVENT DATE: 20141201
